FAERS Safety Report 9065908 (Version 2)
Quarter: 2013Q1

REPORT INFORMATION
  Report Type: Spontaneous
  Country: CA (occurrence: CA)
  Receive Date: 20130201
  Receipt Date: 20130218
  Transmission Date: 20140127
  Serious: Yes (Death, Other)
  Sender: FDA-Public Use
  Company Number: CA-AMGEN-CANSP2013005788

PATIENT
  Age: 79 Year
  Sex: Male

DRUGS (4)
  1. ENBREL [Suspect]
     Indication: ANKYLOSING SPONDYLITIS
     Dosage: 50 QWK
     Route: 058
     Dates: start: 20111005, end: 201203
  2. DEXILANT [Concomitant]
     Dosage: UNK
  3. HYDROMORPHONE [Concomitant]
     Dosage: UNK
  4. COLACE [Concomitant]
     Dosage: UNK

REACTIONS (4)
  - General physical health deterioration [Unknown]
  - Restrictive pulmonary disease [Not Recovered/Not Resolved]
  - Respiratory failure [Fatal]
  - Lower respiratory tract infection fungal [Unknown]
